FAERS Safety Report 10187254 (Version 1)
Quarter: 2014Q2

REPORT INFORMATION
  Report Type: Spontaneous
  Country: HR (occurrence: None)
  Receive Date: 20140520
  Receipt Date: 20140520
  Transmission Date: 20141212
  Serious: Yes (Death)
  Sender: FDA-Public Use
  Company Number: 2014P1004018

PATIENT
  Age: 41 Year
  Sex: Male

DRUGS (12)
  1. FUROSEMIDE [Suspect]
     Indication: OEDEMA
  2. DEXAMETHASONE [Suspect]
     Indication: OEDEMA
  3. THIOPENTAL [Suspect]
     Indication: ANAESTHESIA
  4. SUCCINYLCHOLINE [Suspect]
     Indication: ANAESTHESIA
  5. ISOFLURANE [Suspect]
     Indication: ANAESTHESIA
  6. FENTANYL [Concomitant]
  7. CARBAMAZEPINE [Concomitant]
  8. METOCLOPRAMIDE [Concomitant]
  9. ESOMEPRAZOLE [Concomitant]
  10. CEFAZOLIN [Concomitant]
  11. PANCURONIUM [Concomitant]
  12. NITROGEN OXYDUL WITH OXYGEN [Concomitant]

REACTIONS (17)
  - Renal failure acute [None]
  - Rhabdomyolysis [None]
  - Hyperkalaemia [None]
  - Continuous haemodiafiltration [None]
  - Bladder disorder [None]
  - Thrombosis [None]
  - Respiratory failure [None]
  - Pneumonia [None]
  - Pleural effusion [None]
  - Escherichia test positive [None]
  - Culture urine positive [None]
  - Klebsiella test positive [None]
  - Hypertension [None]
  - Cerebral haemorrhage [None]
  - Brain herniation [None]
  - Multi-organ failure [None]
  - Cardio-respiratory arrest [None]
